FAERS Safety Report 22196944 (Version 1)
Quarter: 2023Q2

REPORT INFORMATION
  Report Type: Spontaneous
  Country: US (occurrence: US)
  Receive Date: 20230411
  Receipt Date: 20230411
  Transmission Date: 20230721
  Serious: Yes (Hospitalization, Other)
  Sender: FDA-Public Use
  Company Number: US-CIPLA LTD.-2023US01888

PATIENT

DRUGS (4)
  1. WARFARIN [Suspect]
     Active Substance: WARFARIN
     Indication: Anticoagulant therapy
     Dosage: UNK
     Route: 065
  2. CEFTRIAXONE [Concomitant]
     Active Substance: CEFTRIAXONE
     Indication: Lymphangitis
     Dosage: 1 GRAM, UNK (10 DAY COURSE)
     Route: 030
  3. SULFAMETHOXAZOLE AND TRIMETHOPRIM [Concomitant]
     Active Substance: SULFAMETHOXAZOLE\TRIMETHOPRIM
     Indication: Lymphangitis
     Dosage: UNK, 800 TO 160 MG
     Route: 065
  4. CEFADROXIL [Concomitant]
     Active Substance: CEFADROXIL
     Indication: Lymphangitis
     Dosage: UNK, FOR 10 DAYS
     Route: 065

REACTIONS (5)
  - Glomerulonephritis [Recovering/Resolving]
  - Acute kidney injury [Recovering/Resolving]
  - Nephropathy [Recovering/Resolving]
  - Haemoglobin decreased [Recovered/Resolved]
  - Anticoagulation drug level above therapeutic [Recovered/Resolved]
